FAERS Safety Report 4433888-9 (Version None)
Quarter: 2004Q3

REPORT INFORMATION
  Report Type: 
  Country: None (occurrence: None)
  Receive Date: 20040825
  Receipt Date: 20040805
  Transmission Date: 20050211
  Serious: No
  Sender: FDA-Public Use
  Company Number: A02200402427

PATIENT
  Sex: Female

DRUGS (5)
  1. ELOXATIN [Suspect]
     Route: 042
     Dates: start: 20040803, end: 20040803
  2. FLUOROURACIL [Concomitant]
  3. FOLINIC ACID [Concomitant]
  4. POLARAMINE [Concomitant]
  5. CORTICOSTEROIDS [Concomitant]

REACTIONS (3)
  - INFUSION RELATED REACTION [None]
  - LOSS OF CONSCIOUSNESS [None]
  - SHOCK [None]
